FAERS Safety Report 9956829 (Version 1)
Quarter: 2014Q1

REPORT INFORMATION
  Report Type: Report from Study
  Country: US (occurrence: US)
  Receive Date: 20140304
  Receipt Date: 20140304
  Transmission Date: 20141002
  Serious: Yes (Hospitalization)
  Sender: FDA-Public Use
  Company Number: US-ABBVIE-13P-163-1097146-00

PATIENT
  Age: 36 Year
  Sex: Female

DRUGS (6)
  1. HUMIRA [Suspect]
     Indication: CROHN^S DISEASE
     Dosage: DAY 1
     Dates: start: 20130401, end: 20130401
  2. HUMIRA [Suspect]
     Dates: start: 20130415, end: 20130415
  3. BENTYL [Concomitant]
     Indication: ABDOMINAL PAIN UPPER
  4. ZOFRAN [Concomitant]
     Indication: NAUSEA
  5. TRAMADOL [Concomitant]
     Indication: PAIN
  6. PERCOCET [Concomitant]
     Indication: PAIN

REACTIONS (3)
  - Diverticulitis [Not Recovered/Not Resolved]
  - Pain [Unknown]
  - Diverticulitis [Unknown]
